FAERS Safety Report 7906779-6 (Version None)
Quarter: 2011Q4

REPORT INFORMATION
  Report Type: 
  Country: None (occurrence: None)
  Receive Date: 20111110
  Receipt Date: 20111103
  Transmission Date: 20120403
  Serious: Yes (Other)
  Sender: FDA-Public Use
  Company Number: DE-BAXTER-2011BH028671

PATIENT
  Age: 74 Year
  Sex: Female
  Weight: 65 kg

DRUGS (10)
  1. GAMMAGARD LIQUID [Suspect]
     Route: 042
  2. GAMMAGARD LIQUID [Suspect]
     Route: 042
  3. GAMMAGARD LIQUID [Suspect]
     Route: 042
  4. GAMMAGARD LIQUID [Suspect]
     Route: 042
     Dates: start: 20110801, end: 20110801
  5. GAMMAGARD LIQUID [Suspect]
     Route: 042
  6. GAMMAGARD LIQUID [Suspect]
     Route: 042
  7. GAMMAGARD LIQUID [Suspect]
     Route: 042
  8. GAMMAGARD LIQUID [Suspect]
     Route: 042
  9. GAMMAGARD LIQUID [Suspect]
     Indication: PRODUCT USED FOR UNKNOWN INDICATION
     Route: 042
     Dates: start: 20110906, end: 20110906
  10. SOLU-DECORTIN-H [Concomitant]
     Indication: PROPHYLAXIS
     Route: 065
     Dates: start: 20110906, end: 20110906

REACTIONS (8)
  - NAUSEA [None]
  - HYPOTENSION [None]
  - URTICARIA [None]
  - PRURITUS [None]
  - HYPERSENSITIVITY [None]
  - DERMATITIS ALLERGIC [None]
  - HYPERHIDROSIS [None]
  - SYNCOPE [None]
